FAERS Safety Report 26061554 (Version 1)
Quarter: 2025Q4

REPORT INFORMATION
  Report Type: Spontaneous
  Country: EU (occurrence: EU)
  Receive Date: 20251118
  Receipt Date: 20251118
  Transmission Date: 20260118
  Serious: Yes (Other)
  Sender: JOHNSON AND JOHNSON
  Company Number: EU-JNJFOC-20251151887

PATIENT
  Sex: Female

DRUGS (1)
  1. RISPERDAL [Suspect]
     Active Substance: RISPERIDONE
     Indication: Product used for unknown indication
     Route: 048

REACTIONS (7)
  - Decreased immune responsiveness [Unknown]
  - Infertility [Unknown]
  - Visual impairment [Unknown]
  - Hypotension [Unknown]
  - Hypersensitivity [Unknown]
  - Muscle twitching [Unknown]
  - Memory impairment [Unknown]
